FAERS Safety Report 7481778-X (Version None)
Quarter: 2011Q2

REPORT INFORMATION
  Report Type: 
  Country: None (occurrence: None)
  Receive Date: 20110506
  Receipt Date: 20110426
  Transmission Date: 20111010
  Serious: Yes (Other)
  Sender: FDA-Public Use
  Company Number: IPC201104-000789

PATIENT

DRUGS (2)
  1. METOCLOPRAMIDE [Suspect]
     Dosage: ORAL
     Route: 048
     Dates: start: 20010701, end: 20090501
  2. METOCLOPRAMIDE HYDROCHLORIDE [Suspect]
     Dosage: ORAL
     Route: 048
     Dates: start: 20010701, end: 20090501

REACTIONS (4)
  - TARDIVE DYSKINESIA [None]
  - RESTLESS LEGS SYNDROME [None]
  - EXTRAPYRAMIDAL DISORDER [None]
  - PARKINSONISM [None]
